FAERS Safety Report 7059327-X (Version None)
Quarter: 2010Q4

REPORT INFORMATION
  Report Type: 
  Country: None (occurrence: None)
  Receive Date: 20101025
  Receipt Date: 20101018
  Transmission Date: 20110411
  Serious: No
  Sender: FDA-Public Use
  Company Number: US-BIOGENIDEC-2010BI035934

PATIENT
  Age: 55 Year
  Sex: Female

DRUGS (3)
  1. AVONEX [Suspect]
     Indication: MULTIPLE SCLEROSIS
     Route: 030
     Dates: start: 20021003, end: 20030801
  2. AVONEX [Suspect]
     Route: 030
     Dates: start: 20040501
  3. AVONEX [Suspect]
     Route: 030
     Dates: start: 20030801, end: 20040501

REACTIONS (4)
  - HEADACHE [None]
  - HERPES SIMPLEX [None]
  - PAIN [None]
  - STRESS [None]
